FAERS Safety Report 5263178-6 (Version None)
Quarter: 2007Q1

REPORT INFORMATION
  Report Type: 
  Country: None (occurrence: None)
  Receive Date: 20061219
  Receipt Date: 20061030
  Transmission Date: 20070707
  Serious: No
  Sender: FDA-Public Use
  Company Number: 2006US002467

PATIENT
  Age: 51 Year
  Sex: Female

DRUGS (3)
  1. VESICARE [Suspect]
     Indication: HYPERTONIC BLADDER
     Dosage: 5 MG, ORAL
     Route: 048
     Dates: start: 20061025, end: 20061029
  2. ANTIBIOTICS [Concomitant]
  3. DRUG USED IN DIABETES [Concomitant]

REACTIONS (1)
  - JOINT SWELLING [None]
